FAERS Safety Report 4502930-9 (Version None)
Quarter: 2004Q4

REPORT INFORMATION
  Report Type: 
  Country: None (occurrence: None)
  Receive Date: 20041116
  Receipt Date: 20041116
  Transmission Date: 20050328
  Serious: Yes (Other)
  Sender: FDA-Public Use
  Company Number: None

PATIENT
  Age: 15 Year
  Sex: Male
  Weight: 73.4827 kg

DRUGS (1)
  1. CIPRODEX [Suspect]
     Dosage: 3 DROPS  4 TIMES AURICULAR
     Route: 001
     Dates: start: 20041020, end: 20041028

REACTIONS (4)
  - RASH [None]
  - SECRETION DISCHARGE [None]
  - SWELLING FACE [None]
  - URTICARIA [None]
